FAERS Safety Report 5723568-1 (Version None)
Quarter: 2008Q2

REPORT INFORMATION
  Report Type: 
  Country: None (occurrence: None)
  Receive Date: 20080430
  Receipt Date: 20080422
  Transmission Date: 20081010
  Serious: Yes (Hospitalization)
  Sender: FDA-Public Use
  Company Number: B0517640A

PATIENT
  Age: 59 Year
  Sex: Female

DRUGS (4)
  1. AUGMENTIN '125' [Suspect]
     Indication: DRUG USE FOR UNKNOWN INDICATION
     Route: 048
     Dates: start: 20080222, end: 20080229
  2. VOLTAREN [Suspect]
     Route: 048
     Dates: start: 20080216
  3. COLCHIMAX [Suspect]
     Route: 048
     Dates: start: 20080226, end: 20080226
  4. FLAGYL [Concomitant]
     Indication: DRUG USE FOR UNKNOWN INDICATION
     Route: 048
     Dates: start: 20080222, end: 20080229

REACTIONS (1)
  - BONE MARROW FAILURE [None]
